FAERS Safety Report 8552582-6 (Version None)
Quarter: 2012Q3

REPORT INFORMATION
  Report Type: 
  Country: None (occurrence: None)
  Receive Date: 20120731
  Receipt Date: 20120718
  Transmission Date: 20120928
  Serious: No
  Sender: FDA-Public Use
  Company Number: US-BAYER-2012-072716

PATIENT
  Age: 83 Year
  Sex: Female
  Weight: 84 kg

DRUGS (3)
  1. ALEVE (CAPLET) [Suspect]
     Indication: ARTHRITIS
     Dosage: 2 DF, QD
     Route: 048
     Dates: start: 20120704
  2. SPIRIVA [Concomitant]
  3. CLONAZEPAM [Concomitant]

REACTIONS (2)
  - TREMOR [None]
  - CONSTIPATION [None]
